FAERS Safety Report 8950874 (Version 1)
Quarter: 2012Q4

REPORT INFORMATION
  Report Type: Spontaneous
  Country: US (occurrence: None)
  Receive Date: 20121130
  Receipt Date: 20121130
  Transmission Date: 20130627
  Serious: Yes (Other)
  Sender: FDA-Public Use
  Company Number: None

PATIENT
  Age: 55 Year
  Sex: Male
  Weight: 124.29 kg

DRUGS (1)
  1. ATORVASTATIN [Suspect]
     Indication: BLOOD CHOLESTEROL INCREASED
     Dosage: 1 Pill   Once a day   po
     Route: 048
     Dates: start: 20120207, end: 20121105

REACTIONS (4)
  - Penile haemorrhage [None]
  - Penis disorder [None]
  - Product quality issue [None]
  - Product contamination physical [None]
